FAERS Safety Report 8009936-6 (Version None)
Quarter: 2011Q4

REPORT INFORMATION
  Report Type: 
  Country: None (occurrence: None)
  Receive Date: 20111228
  Receipt Date: 20111219
  Transmission Date: 20120403
  Serious: Yes (Hospitalization, Other)
  Sender: FDA-Public Use
  Company Number: PHHO2010JP09115

PATIENT
  Sex: Male

DRUGS (21)
  1. CARVEDILOL [Concomitant]
     Indication: CARDIAC FAILURE
     Dosage: 2.5 MG, TID
     Route: 048
     Dates: start: 20091102
  2. CARVEDILOL [Concomitant]
     Dosage: 5 MG, TID
     Route: 048
  3. BLINDED ALISKIREN [Suspect]
     Indication: CARDIAC FAILURE
     Dosage: CODE NOT BROKEN
     Route: 048
     Dates: start: 20100208, end: 20100614
  4. EQUA [Suspect]
     Dosage: 25 MG, DAILY
  5. SPIRONOLACTONE [Concomitant]
     Indication: CARDIAC FAILURE CHRONIC
     Dosage: 25 MG, UNK
     Route: 048
     Dates: start: 20100625, end: 20110701
  6. EPADEL [Concomitant]
     Dosage: 1800 MG, UNK
     Route: 048
     Dates: start: 20080801
  7. ENALAPRIL MALEATE [Concomitant]
     Dosage: 20 MG, UNK
     Route: 048
     Dates: start: 20100614, end: 20110701
  8. ENALAPRIL MALEATE [Suspect]
     Indication: CARDIAC FAILURE
     Dosage: UNK
     Route: 048
     Dates: start: 20091201
  9. ALLOPURINOL [Concomitant]
     Dosage: 100 MG, UNK
     Route: 048
     Dates: start: 20070821
  10. WARFARIN [Concomitant]
     Dosage: 3 MG, UNK
     Route: 048
     Dates: start: 20091006
  11. EQUA [Suspect]
     Dosage: 50 MG, QD
     Dates: start: 20110531
  12. CANDESARTAN CILEXETIL [Concomitant]
     Indication: CARDIAC FAILURE CHRONIC
     Dosage: 12 MG, QD
     Route: 048
     Dates: start: 20060825
  13. CARVEDILOL [Concomitant]
     Dosage: 2.5 MG, TID
     Route: 048
  14. BLINDED NO TREATMENT RECEIVED [Suspect]
     Indication: CARDIAC FAILURE
     Dosage: CODE NOT BROKEN
     Route: 048
     Dates: start: 20100208, end: 20100614
  15. ALISKIREN [Suspect]
     Indication: CARDIAC FAILURE
     Dosage: UNK
     Route: 048
     Dates: start: 20100118
  16. BASEN [Concomitant]
     Dosage: 0.6 MG, UNK
     Route: 048
     Dates: start: 20100625
  17. LASIX [Concomitant]
     Dosage: 40 MG, DAILY
     Route: 048
  18. LASIX [Concomitant]
     Indication: CARDIAC FAILURE CHRONIC
     Dosage: 80 MG, BID
     Route: 048
     Dates: start: 20090903
  19. LASIX [Concomitant]
     Dosage: 20 MG, DAILY
     Route: 048
  20. CANDESARTAN CILEXETIL [Concomitant]
     Dosage: 2 MG, DAILY
     Route: 048
     Dates: start: 20110708
  21. ENALAPRIL MALEATE [Suspect]
     Indication: CARDIAC FAILURE
     Dosage: CODE NOT BROKEN
     Route: 048
     Dates: start: 20100208, end: 20100614

REACTIONS (7)
  - HEART RATE DECREASED [None]
  - MYOCARDIAL ISCHAEMIA [None]
  - CARDIAC FAILURE [None]
  - RENAL FAILURE [None]
  - BLOOD PRESSURE DECREASED [None]
  - DYSPNOEA [None]
  - OEDEMA [None]
